FAERS Safety Report 5518520-5 (Version None)
Quarter: 2007Q4

REPORT INFORMATION
  Report Type: 
  Country: None (occurrence: None)
  Receive Date: 20071115
  Receipt Date: 20071103
  Transmission Date: 20080405
  Serious: Yes (Hospitalization, Other)
  Sender: FDA-Public Use
  Company Number: US-PFIZER INC-2007069681

PATIENT
  Sex: Female
  Weight: 109 kg

DRUGS (21)
  1. LYRICA [Suspect]
     Indication: PAIN IN EXTREMITY
  2. DILANTIN [Suspect]
  3. NADOLOL [Concomitant]
  4. WARFARIN SODIUM [Concomitant]
  5. ACETYLSALICYLIC ACID SRT [Concomitant]
  6. METHOCARBAMOL [Concomitant]
  7. LASIX [Concomitant]
  8. ACTONEL [Concomitant]
  9. LAXATIVES [Concomitant]
  10. EVION [Concomitant]
  11. METOPROLOL TARTRATE [Concomitant]
  12. NOVOLOG [Concomitant]
  13. ZOLPIDEM TARTRATE [Concomitant]
  14. ALLEGRA [Concomitant]
  15. LISINOPRIL [Concomitant]
  16. ACTOS [Concomitant]
  17. LEXAPRO [Concomitant]
  18. LANOXIN [Concomitant]
  19. ZETIA [Concomitant]
  20. SIMVASTATIN [Concomitant]
  21. FISH OIL [Concomitant]

REACTIONS (13)
  - APHASIA [None]
  - AREFLEXIA [None]
  - BLOOD GLUCOSE INCREASED [None]
  - CEREBROVASCULAR ACCIDENT [None]
  - CONVULSION [None]
  - EPILEPSY [None]
  - HYPERTENSION [None]
  - MUSCLE SPASMS [None]
  - MUSCULAR WEAKNESS [None]
  - MUTISM [None]
  - PALLANAESTHESIA [None]
  - SOMNOLENCE [None]
  - WEIGHT INCREASED [None]
